FAERS Safety Report 5380881-8 (Version None)
Quarter: 2007Q3

REPORT INFORMATION
  Report Type: 
  Country: None (occurrence: None)
  Receive Date: 20070706
  Receipt Date: 20070703
  Transmission Date: 20080115
  Serious: Yes (Other)
  Sender: FDA-Public Use
  Company Number: US-ASTRAZENECA-2007UW15635

PATIENT
  Age: 73 Year
  Sex: Female
  Weight: 70.3 kg

DRUGS (2)
  1. ARIMIDEX [Suspect]
     Indication: BREAST CANCER
     Route: 048
  2. ALEVE [Concomitant]

REACTIONS (3)
  - INTERVERTEBRAL DISC DEGENERATION [None]
  - NECK PAIN [None]
  - SPONDYLITIS [None]
